FAERS Safety Report 14245257 (Version 1)
Quarter: 2017Q4

REPORT INFORMATION
  Report Type: Spontaneous
  Country: None (occurrence: US)
  Receive Date: 20171202
  Receipt Date: 20171202
  Transmission Date: 20180321
  Serious: No
  Sender: FDA-Public Use
  Company Number: US-ENDO PHARMACEUTICALS INC-2016-007262

PATIENT
  Sex: Male
  Weight: 92.62 kg

DRUGS (3)
  1. XIAFLEX [Suspect]
     Active Substance: COLLAGENASE CLOSTRIDIUM HISTOLYTICUM
     Dosage: SECOND CYCLE OF 2 INJECTIONS
     Route: 026
     Dates: start: 2016, end: 2016
  2. XIAFLEX [Suspect]
     Active Substance: COLLAGENASE CLOSTRIDIUM HISTOLYTICUM
     Dosage: FIRST CYCLE OF 2 INJECTIONS
     Route: 026
     Dates: start: 2016, end: 2016
  3. XIAFLEX [Suspect]
     Active Substance: COLLAGENASE CLOSTRIDIUM HISTOLYTICUM
     Indication: PEYRONIE^S DISEASE
     Dosage: UNK, UNKNOWN
     Route: 026
     Dates: start: 20161114, end: 20161114

REACTIONS (4)
  - Penile contusion [Unknown]
  - Injection site pain [Unknown]
  - Drug effect decreased [Not Recovered/Not Resolved]
  - Inappropriate schedule of drug administration [Unknown]

NARRATIVE: CASE EVENT DATE: 2016
